FAERS Safety Report 11268174 (Version 3)
Quarter: 2016Q4

REPORT INFORMATION
  Report Type: Report from Study
  Country: FR (occurrence: FR)
  Receive Date: 20150714
  Receipt Date: 20161014
  Transmission Date: 20170206
  Serious: Yes (Other)
  Sender: FDA-Public Use
  Company Number: FR-ROCHE-ITM201310IM004330

PATIENT
  Age: 66 Year
  Sex: Female
  Weight: 60 kg

DRUGS (10)
  1. PREDNISOLONE. [Concomitant]
     Active Substance: PREDNISOLONE
     Route: 065
     Dates: start: 20150420, end: 20150422
  2. PIRFENIDONE [Suspect]
     Active Substance: PIRFENIDONE
     Indication: IDIOPATHIC PULMONARY FIBROSIS
     Route: 048
     Dates: start: 20130703
  3. OROCAL (FRANCE) [Concomitant]
     Indication: OSTEOPOROSIS PROPHYLAXIS
     Route: 065
  4. AUGMENTIN [Concomitant]
     Active Substance: AMOXICILLIN\CLAVULANATE POTASSIUM
     Indication: IDIOPATHIC PULMONARY FIBROSIS
     Route: 065
     Dates: start: 20150417, end: 20150427
  5. EVISTA [Concomitant]
     Active Substance: RALOXIFENE HYDROCHLORIDE
     Indication: OSTEOPOROSIS PROPHYLAXIS
     Route: 065
  6. VITAMIN D3 [Concomitant]
     Active Substance: CHOLECALCIFEROL
     Indication: OSTEOPOROSIS
     Route: 065
  7. INEXIUM [Concomitant]
     Active Substance: ESOMEPRAZOLE
     Indication: GASTROOESOPHAGEAL REFLUX PROPHYLAXIS
     Route: 065
     Dates: start: 20140108
  8. KARDEGIC [Concomitant]
     Active Substance: ASPIRIN LYSINE
     Indication: PROPHYLAXIS
     Route: 065
     Dates: start: 20131231
  9. PREDNISOLONE. [Concomitant]
     Active Substance: PREDNISOLONE
     Indication: IDIOPATHIC PULMONARY FIBROSIS
     Route: 065
     Dates: start: 20150417, end: 20150419
  10. VITAMIN D3 [Concomitant]
     Active Substance: CHOLECALCIFEROL
     Indication: OSTEOPOROSIS

REACTIONS (4)
  - Nausea [Recovered/Resolved with Sequelae]
  - Fatigue [Not Recovered/Not Resolved]
  - Retinal artery occlusion [Recovered/Resolved with Sequelae]
  - Basal cell carcinoma [Recovered/Resolved]

NARRATIVE: CASE EVENT DATE: 201308
